FAERS Safety Report 23827271 (Version 1)
Quarter: 2024Q2

REPORT INFORMATION
  Report Type: Report from Study
  Country: US (occurrence: US)
  Receive Date: 20240507
  Receipt Date: 20240507
  Transmission Date: 20240715
  Serious: Yes (Hospitalization)
  Sender: FDA-Public Use
  Company Number: US-PFIZER INC-202400101605

PATIENT
  Age: 69 Year
  Sex: Male

DRUGS (1)
  1. IBRANCE [Suspect]
     Active Substance: PALBOCICLIB
     Dosage: 100MG TAKE 1 TABLET BY MOUTH DAILY ON DAYS 1-21, THEN OFF FOR 7 DAYS ON A 28 DAY CYCLE
     Route: 048

REACTIONS (4)
  - Emphysema [Unknown]
  - Chronic obstructive pulmonary disease [Unknown]
  - Product dose omission issue [Unknown]
  - Dysphonia [Unknown]
